FAERS Safety Report 14479481 (Version 1)
Quarter: 2018Q1

REPORT INFORMATION
  Report Type: Spontaneous
  Country: GB (occurrence: GB)
  Receive Date: 20180202
  Receipt Date: 20180202
  Transmission Date: 20180509
  Serious: Yes (Hospitalization)
  Sender: FDA-Public Use
  Company Number: GB-ALLERGAN-1804926US

PATIENT
  Age: 58 Year
  Sex: Female
  Weight: 56.6 kg

DRUGS (2)
  1. CITALOPRAM HYDROBROMIDE - BP [Suspect]
     Active Substance: CITALOPRAM HYDROBROMIDE
     Indication: DEPRESSION
     Dosage: 40 MD
     Route: 048
     Dates: start: 20031101, end: 20171221
  2. MIRTAZAPINE. [Concomitant]
     Active Substance: MIRTAZAPINE
     Indication: PRODUCT USED FOR UNKNOWN INDICATION
     Dosage: STOPPED ON ADMISSION.
     Route: 065

REACTIONS (2)
  - Hyponatraemic seizure [Recovered/Resolved]
  - Circulatory collapse [Unknown]
